FAERS Safety Report 9388326 (Version 1)
Quarter: 2013Q3

REPORT INFORMATION
  Report Type: Spontaneous
  Country: US (occurrence: None)
  Receive Date: 20130703
  Receipt Date: 20130703
  Transmission Date: 20140515
  Serious: Yes (Death)
  Sender: FDA-Public Use
  Company Number: KAD201306-000771

PATIENT
  Age: 71 Year
  Sex: Male

DRUGS (2)
  1. AMPHOTERICIN B [Suspect]
     Indication: PHAEHYPHOMYCOSIS
  2. VORICONAZOLE [Suspect]
     Indication: PHAEHYPHOMYCOSIS

REACTIONS (2)
  - Cerebellar haemorrhage [None]
  - Post procedural complication [None]
